FAERS Safety Report 9306400 (Version 1)
Quarter: 2013Q2

REPORT INFORMATION
  Report Type: Spontaneous
  Country: SE (occurrence: None)
  Receive Date: 20130520
  Receipt Date: 20130520
  Transmission Date: 20140414
  Serious: Yes (Hospitalization)
  Sender: FDA-Public Use
  Company Number: 2013145706

PATIENT
  Age: 88 Year
  Sex: Female

DRUGS (2)
  1. TROMBYL [Suspect]
  2. FRAGMIN (DALTEPARIN SODIUM) SOLUTION FOR INJECTION [Suspect]
     Dates: start: 201304

REACTIONS (2)
  - Local swelling [None]
  - Post procedural haemorrhage [None]
